FAERS Safety Report 4662966-4 (Version None)
Quarter: 2005Q2

REPORT INFORMATION
  Report Type: 
  Country: None (occurrence: None)
  Receive Date: 20050516
  Receipt Date: 20030908
  Transmission Date: 20051028
  Serious: Yes (Hospitalization, Other)
  Sender: FDA-Public Use
  Company Number: US-MERCK-0309USA00839

PATIENT
  Age: 61 Year
  Sex: Male
  Weight: 63 kg

DRUGS (13)
  1. VIOXX [Suspect]
     Indication: TENDONITIS
     Route: 048
     Dates: start: 19991006, end: 20020101
  2. VIOXX [Suspect]
     Route: 048
     Dates: start: 20020306
  3. LIBRAX CAPSULES [Concomitant]
     Route: 065
  4. ZANTAC [Concomitant]
     Route: 065
  5. CYCLOBENZAPRINE HYDROCHLORIDE [Concomitant]
     Route: 065
  6. ACETAMINOPHEN AND PROPOXYPHENE NAPSYLATE [Concomitant]
     Route: 065
  7. ALLEGRA [Concomitant]
     Route: 065
  8. PRILOSEC [Concomitant]
     Route: 065
  9. XANAX [Concomitant]
     Route: 065
  10. ASPIRIN [Concomitant]
     Route: 065
  11. TYLENOL (CAPLET) [Concomitant]
     Route: 065
  12. VIOXX [Suspect]
     Indication: OSTEOARTHRITIS
     Route: 048
     Dates: start: 19991006, end: 20020101
  13. VIOXX [Suspect]
     Route: 048
     Dates: start: 20020306

REACTIONS (76)
  - ALOPECIA [None]
  - ANGINA UNSTABLE [None]
  - ANXIETY [None]
  - ANXIETY DISORDER [None]
  - AZOTAEMIA [None]
  - BENIGN NEOPLASM [None]
  - BENIGN PROSTATIC HYPERPLASIA [None]
  - BUNDLE BRANCH BLOCK RIGHT [None]
  - CHEST PAIN [None]
  - CHONDROMALACIA [None]
  - COLONIC POLYP [None]
  - CONDITION AGGRAVATED [None]
  - CONSTIPATION [None]
  - CORONARY ARTERY DISEASE [None]
  - CORONARY ARTERY RESTENOSIS [None]
  - CORONARY ARTERY STENOSIS [None]
  - DEHYDRATION [None]
  - DEPRESSION [None]
  - DERMATITIS [None]
  - DIARRHOEA [None]
  - DRUG INTOLERANCE [None]
  - DYSPEPSIA [None]
  - DYSURIA [None]
  - EARLY MORNING AWAKENING [None]
  - EPICONDYLITIS [None]
  - EXOSTOSIS [None]
  - FALL [None]
  - FOOD INTOLERANCE [None]
  - GASTROENTERITIS VIRAL [None]
  - GENERALISED ANXIETY DISORDER [None]
  - GOUT [None]
  - HAEMATOMA [None]
  - HAIR TEXTURE ABNORMAL [None]
  - HEADACHE [None]
  - HEARING IMPAIRED [None]
  - HYPERCHOLESTEROLAEMIA [None]
  - HYPERTENSION [None]
  - HYPOAESTHESIA [None]
  - INCREASED TENDENCY TO BRUISE [None]
  - INSOMNIA [None]
  - INTERVERTEBRAL DISC DEGENERATION [None]
  - INTERVERTEBRAL DISC PROTRUSION [None]
  - ISCHAEMIC CARDIOMYOPATHY [None]
  - LIPOPROTEIN (A) ABNORMAL [None]
  - LOW DENSITY LIPOPROTEIN INCREASED [None]
  - LUNG NEOPLASM [None]
  - MICTURITION URGENCY [None]
  - MYOCARDIAL INFARCTION [None]
  - MYOSITIS [None]
  - NASAL CONGESTION [None]
  - NECK PAIN [None]
  - NERVE ROOT COMPRESSION [None]
  - NERVOUSNESS [None]
  - OESOPHAGEAL SPASM [None]
  - OSTEOCHONDROSIS [None]
  - PAIN IN EXTREMITY [None]
  - POLLAKIURIA [None]
  - POSTNASAL DRIP [None]
  - PRODUCTIVE COUGH [None]
  - PROSTATITIS [None]
  - PRURITUS [None]
  - RADICULITIS [None]
  - RADICULITIS CERVICAL [None]
  - RECTAL HAEMORRHAGE [None]
  - RHINORRHOEA [None]
  - ROTATOR CUFF SYNDROME [None]
  - SINUS DISORDER [None]
  - SLEEP DISORDER [None]
  - SNEEZING [None]
  - SPINAL COLUMN STENOSIS [None]
  - SPINAL OSTEOARTHRITIS [None]
  - STOMACH DISCOMFORT [None]
  - STRESS [None]
  - TENDONITIS [None]
  - TINNITUS [None]
  - URINARY TRACT INFECTION [None]
